FAERS Safety Report 14373305 (Version 1)
Quarter: 2018Q1

REPORT INFORMATION
  Report Type: Spontaneous
  Country: AS (occurrence: AS)
  Receive Date: 20180109
  Receipt Date: 20180109
  Transmission Date: 20180509
  Serious: Yes (Life-Threatening, Hospitalization)
  Sender: FDA-Public Use
  Company Number: None

PATIENT
  Age: 72 Year
  Sex: Male

DRUGS (2)
  1. SULFAMETHIZOLE/TRIMETHOPRIM [Suspect]
     Active Substance: SULFAMETHOXAZOLE\TRIMETHOPRIM
     Route: 048
     Dates: start: 20170713, end: 20170728
  2. MELOXICAM. [Suspect]
     Active Substance: MELOXICAM
     Route: 048
     Dates: start: 20170218, end: 20170728

REACTIONS (5)
  - Nodal rhythm [None]
  - Fatigue [None]
  - Electrocardiogram T wave peaked [None]
  - Hyperkalaemia [None]
  - Renal impairment [None]

NARRATIVE: CASE EVENT DATE: 20170728
